FAERS Safety Report 18818115 (Version 1)
Quarter: 2021Q1

REPORT INFORMATION
  Report Type: Spontaneous
  Country: DE (occurrence: DE)
  Receive Date: 20210202
  Receipt Date: 20210202
  Transmission Date: 20210419
  Serious: Yes (Hospitalization, Other)
  Sender: FDA-Public Use
  Company Number: DE-SA-2021SA028153

PATIENT
  Age: 94 Year
  Sex: Female

DRUGS (5)
  1. ACETYLSALICYLIC ACID [Suspect]
     Active Substance: ASPIRIN
     Dosage: 100 MG, QD
  2. AMLODIPINE [Concomitant]
     Active Substance: AMLODIPINE BESYLATE
     Dosage: 10 MG(1?0?0?0)
  3. CLOPIDOGREL BISULFATE. [Suspect]
     Active Substance: CLOPIDOGREL BISULFATE
     Dosage: 75 MG, QD
  4. RAMIPRIL. [Concomitant]
     Active Substance: RAMIPRIL
     Dosage: 5 MG (1?0?0?0)
  5. BISOPROLOL/HYDROCHLOROTHIAZIDE EG [Concomitant]
     Dosage: 12.5 MG(1?0?0?0)

REACTIONS (6)
  - General physical health deterioration [Unknown]
  - Anaemia [Unknown]
  - Internal haemorrhage [Unknown]
  - Haematochezia [Unknown]
  - Dizziness [Unknown]
  - Abdominal pain upper [Unknown]
